FAERS Safety Report 6930857-1 (Version None)
Quarter: 2010Q3

REPORT INFORMATION
  Report Type: 
  Country: None (occurrence: None)
  Receive Date: 20100818
  Receipt Date: 20100804
  Transmission Date: 20110219
  Serious: Yes (Hospitalization)
  Sender: FDA-Public Use
  Company Number: IT-WYE-H16922910

PATIENT
  Age: 75 Year
  Sex: Male

DRUGS (7)
  1. CORDARONE [Suspect]
     Dosage: DOSE AND FREQUENCY NOT SPECIFIED
     Route: 048
     Dates: start: 19961001
  2. FUROSEMIDE [Concomitant]
     Dosage: DOSE AND FREQUENCY NOT SPECIFIED
     Route: 065
     Dates: start: 20070322
  3. LEVOTHYROXINE [Concomitant]
     Dosage: DOSE AND FREQUENCY NOT SPECIFIED
     Route: 065
     Dates: start: 19970101
  4. BISOPROLOL [Suspect]
     Dosage: DOSE AND FREQUENCY NOT SPECIFIED
     Route: 048
     Dates: start: 20070423
  5. OMEPRAZOLE [Concomitant]
     Dosage: DOSE AND FREQUENCY NOT SPECIFIED
     Route: 065
     Dates: start: 20061001
  6. RAMIPRIL [Concomitant]
     Dosage: DOSE AND FREQUENCY NOT SPECIFIED
     Route: 065
     Dates: start: 20070322
  7. ACENOCOUMAROL [Concomitant]
     Dosage: DOSE AND FREQUENCY NOT SPECIFIED
     Route: 065
     Dates: start: 19960917

REACTIONS (1)
  - SYNCOPE [None]
